FAERS Safety Report 23201713 (Version 1)
Quarter: 2023Q4

REPORT INFORMATION
  Report Type: Spontaneous
  Country: US (occurrence: None)
  Receive Date: 20231118
  Receipt Date: 20231118
  Transmission Date: 20240110
  Serious: No
  Sender: FDA-Public Use
  Company Number: None

PATIENT
  Sex: Male

DRUGS (1)
  1. OJJAARA [Suspect]
     Active Substance: MOMELOTINIB DIHYDROCHLORIDE MONOHYDRATE
     Indication: Polycythaemia vera

REACTIONS (6)
  - Pneumonia [None]
  - Dehydration [None]
  - Therapy interrupted [None]
  - Nausea [None]
  - Faeces soft [None]
  - Blood creatinine increased [None]
